FAERS Safety Report 11863908 (Version 1)
Quarter: 2015Q4

REPORT INFORMATION
  Report Type: Report from Study
  Country: US (occurrence: US)
  Receive Date: 20151223
  Receipt Date: 20151223
  Transmission Date: 20160305
  Serious: Yes (Other)
  Sender: FDA-Public Use
  Company Number: US-BAYER-2015-480055

PATIENT
  Age: 61 Year
  Sex: Female

DRUGS (1)
  1. NEXAVAR [Suspect]
     Active Substance: SORAFENIB
     Indication: PRODUCT USED FOR UNKNOWN INDICATION
     Dosage: 400 MG, BID
     Route: 048
     Dates: start: 20151118, end: 2015

REACTIONS (5)
  - Aphasia [None]
  - Pain in extremity [None]
  - Skin exfoliation [None]
  - Hypersensitivity [None]
  - Swollen tongue [None]

NARRATIVE: CASE EVENT DATE: 20151215
